FAERS Safety Report 4767419-0 (Version None)
Quarter: 2005Q3

REPORT INFORMATION
  Report Type: 
  Country: None (occurrence: None)
  Receive Date: 20050913
  Receipt Date: 20050609
  Transmission Date: 20060218
  Serious: Yes (Other)
  Sender: FDA-Public Use
  Company Number: US-MERCK-0506USA01839

PATIENT
  Age: 67 Year
  Sex: Male
  Weight: 127 kg

DRUGS (14)
  1. VIOXX [Suspect]
     Indication: ARTHRITIS
     Route: 048
     Dates: start: 20030201, end: 20040201
  2. VIOXX [Suspect]
     Route: 048
     Dates: start: 20030201, end: 20040201
  3. COLCHICINE [Concomitant]
     Route: 065
  4. FUROSEMIDE [Concomitant]
     Route: 065
  5. LISINOPRIL [Concomitant]
     Route: 065
  6. ALLOPURINOL [Concomitant]
     Route: 065
  7. SINGULAIR [Concomitant]
     Route: 065
  8. METOPROLOL [Concomitant]
     Route: 065
  9. SIMVASTATIN [Concomitant]
     Route: 065
  10. TRAZODONE HYDROCHLORIDE [Concomitant]
     Route: 065
  11. ASPIRIN [Concomitant]
     Route: 065
  12. ALBUTEROL [Concomitant]
     Route: 065
  13. SEREVENT [Concomitant]
     Route: 065
  14. VICODIN [Concomitant]
     Route: 065

REACTIONS (5)
  - ANXIETY [None]
  - CEREBROVASCULAR ACCIDENT [None]
  - DEPRESSION [None]
  - PRESCRIBED OVERDOSE [None]
  - RENAL FAILURE [None]
